FAERS Safety Report 9768251 (Version 1)
Quarter: 2013Q4

REPORT INFORMATION
  Report Type: Spontaneous
  Country: DK (occurrence: FR)
  Receive Date: 20131217
  Receipt Date: 20131217
  Transmission Date: 20140711
  Serious: Yes (Hospitalization)
  Sender: FDA-Public Use
  Company Number: FR-FRI-1000052313

PATIENT
  Age: 59 Year
  Sex: Male

DRUGS (11)
  1. ESCITALOPRAM [Suspect]
     Dosage: TITRATION UP TO 35 MG DAILY
     Route: 048
     Dates: start: 20130909, end: 20131009
  2. ESCITALOPRAM [Suspect]
     Dosage: 30 MG
     Route: 048
     Dates: start: 20131010
  3. THERALENE [Suspect]
     Dosage: 15 DF
     Route: 048
  4. MIANSERINE [Suspect]
     Dosage: 30 MG
     Dates: start: 201309
  5. XEROQUEL [Suspect]
     Dosage: PROGRESSIVE TITRATION UP TO 200 MG DAILY
     Route: 048
     Dates: start: 20131002, end: 20131009
  6. IMOVANE [Concomitant]
     Dosage: 7.5 MG
     Route: 048
  7. TRANSIPEG [Concomitant]
     Dosage: 2 DF
     Route: 048
  8. SERESTA [Concomitant]
     Dosage: 3 DF
     Route: 048
     Dates: end: 20131014
  9. XARELTO [Concomitant]
     Dosage: 1 DF
     Route: 048
  10. PROPRANOLOL [Concomitant]
     Dosage: 80 MG
     Dates: end: 20131014
  11. INEXIUM [Concomitant]
     Dosage: 20 MG
     Route: 048
     Dates: end: 20131014

REACTIONS (2)
  - Grand mal convulsion [Recovered/Resolved]
  - Overdose [Recovered/Resolved]
